FAERS Safety Report 8802503 (Version 3)
Quarter: 2013Q1

REPORT INFORMATION
  Report Type: Spontaneous
  Country: US (occurrence: US)
  Receive Date: 20120921
  Receipt Date: 20130326
  Transmission Date: 20140127
  Serious: Yes (Death, Life-Threatening, Hospitalization, Other)
  Sender: FDA-Public Use
  Company Number: US-ASTRAZENECA-2010SE59694

PATIENT
  Age: 77 Year
  Sex: Male

DRUGS (3)
  1. TOPROL XL [Suspect]
     Indication: BLOOD PRESSURE ABNORMAL
     Route: 048
     Dates: start: 2009
  2. TOPROL XL [Suspect]
     Indication: BLOOD PRESSURE ABNORMAL
     Route: 048
  3. OXYGEN [Concomitant]

REACTIONS (17)
  - Death [Fatal]
  - Aspiration [Unknown]
  - Cerebrovascular accident [Unknown]
  - Apnoea [Unknown]
  - Hypoglycaemic unconsciousness [Unknown]
  - Back pain [Unknown]
  - Cough [Unknown]
  - Oxygen saturation decreased [Unknown]
  - Cellulitis [Unknown]
  - Dyspnoea [Unknown]
  - Platelet count decreased [Unknown]
  - Hypoglycaemia [Unknown]
  - Loss of consciousness [Unknown]
  - Unresponsive to stimuli [Unknown]
  - Cardiac disorder [Unknown]
  - Off label use [Unknown]
  - Intentional drug misuse [Unknown]
